FAERS Safety Report 9650448 (Version 1)
Quarter: 2013Q4

REPORT INFORMATION
  Report Type: Spontaneous
  Country: US (occurrence: US)
  Receive Date: 20131028
  Receipt Date: 20131028
  Transmission Date: 20140711
  Serious: No
  Sender: FDA-Public Use
  Company Number: US-009507513-1310USA006990

PATIENT
  Sex: Female

DRUGS (2)
  1. PROVENTIL [Suspect]
     Dosage: 1 STANDARD DOSE OF 6.7
     Route: 055
  2. PROVENTIL [Suspect]
     Dosage: 1 STANDARD DOSE OF 6.7
     Route: 055

REACTIONS (3)
  - Drug dose omission [Unknown]
  - Product quality issue [Unknown]
  - No adverse event [Unknown]
